FAERS Safety Report 6883870-7 (Version None)
Quarter: 2010Q3

REPORT INFORMATION
  Report Type: 
  Country: None (occurrence: None)
  Receive Date: 20100727
  Receipt Date: 20100727
  Transmission Date: 20110219
  Serious: Yes (Hospitalization, Disabling)
  Sender: FDA-Public Use
  Company Number: 1022556-2010-00043

PATIENT
  Age: 20 Year
  Sex: Male
  Weight: 79.3795 kg

DRUGS (1)
  1. ICY HOT BALM 3.5 OZ. [Suspect]
     Indication: MYALGIA
     Dosage: TOPICAL
     Route: 061

REACTIONS (4)
  - BETA HAEMOLYTIC STREPTOCOCCAL INFECTION [None]
  - NECROTISING FASCIITIS [None]
  - RENAL FAILURE [None]
  - THROMBOCYTOPENIA [None]
